FAERS Safety Report 7475083-5 (Version None)
Quarter: 2011Q2

REPORT INFORMATION
  Report Type: 
  Country: None (occurrence: None)
  Receive Date: 20110512
  Receipt Date: 20110428
  Transmission Date: 20111010
  Serious: Yes (Other)
  Sender: FDA-Public Use
  Company Number: DE-AMGEN-DEUSP2011023154

PATIENT
  Age: 59 Year
  Sex: Female
  Weight: 57 kg

DRUGS (8)
  1. ACTONEL [Concomitant]
     Indication: PRODUCT USED FOR UNKNOWN INDICATION
     Dosage: UNK
  2. CALCIMAGON                         /00108001/ [Concomitant]
     Dosage: UNK
  3. HUMIRA [Suspect]
     Indication: SPONDYLITIS
     Dosage: 1 X 40 MG/DAY, EVERY 2 WEEKS
     Route: 058
     Dates: start: 20070927, end: 20080611
  4. CELEBREX [Concomitant]
     Dosage: UNK
  5. AZULFIDINE [Suspect]
     Indication: SPONDYLITIS
     Dosage: 2 G, 1X/DAY
     Route: 048
     Dates: start: 20080611, end: 20090122
  6. ENBREL [Suspect]
     Indication: PRODUCT USED FOR UNKNOWN INDICATION
     Dosage: 1 X 25 MG, WEEKLY
     Route: 058
     Dates: start: 20090122, end: 20091214
  7. MAGNESIUM [Concomitant]
     Dosage: UNK
  8. REMICADE [Suspect]
     Indication: SPONDYLITIS
     Dosage: 1 X 200 MG, EVERY 6 WEEKS
     Route: 042
     Dates: start: 20070327, end: 20070927

REACTIONS (2)
  - PERICARDIAL EFFUSION [None]
  - CARDIOMEGALY [None]
